FAERS Safety Report 5526984-6 (Version None)
Quarter: 2007Q4

REPORT INFORMATION
  Report Type: 
  Country: None (occurrence: None)
  Receive Date: 20071127
  Receipt Date: 20071113
  Transmission Date: 20080405
  Serious: Yes (Hospitalization)
  Sender: FDA-Public Use
  Company Number: ES-ELI_LILLY_AND_COMPANY-ES200711003145

PATIENT
  Age: 8 Year
  Sex: Female

DRUGS (2)
  1. ATOMOXETINE HCL [Suspect]
     Indication: ATTENTION DEFICIT/HYPERACTIVITY DISORDER
     Dosage: 25 MG, UNKNOWN
     Route: 048
  2. ATOMOXETINE HCL [Suspect]
     Dosage: 18 MG, UNKNOWN
     Route: 048

REACTIONS (1)
  - HYPOTENSION [None]
